FAERS Safety Report 6099062-8 (Version None)
Quarter: 2009Q1

REPORT INFORMATION
  Report Type: 
  Country: None (occurrence: None)
  Receive Date: 20090302
  Receipt Date: 20090220
  Transmission Date: 20090719
  Serious: Yes (Death)
  Sender: FDA-Public Use
  Company Number: US-ELI_LILLY_AND_COMPANY-US200802004622

PATIENT
  Sex: Female
  Weight: 56.689 kg

DRUGS (7)
  1. ZYPREXA [Suspect]
     Dosage: 40 MG, UNK
     Dates: start: 20060301, end: 20060701
  2. CLONIDINE [Concomitant]
  3. DEPAKOTE ER [Concomitant]
  4. COGENTIN [Concomitant]
  5. BENADRYL [Concomitant]
  6. CHLORPROMAZINE [Concomitant]
  7. HALOPERIDOL [Concomitant]

REACTIONS (4)
  - BLOOD GLUCOSE ABNORMAL [None]
  - DEATH [None]
  - ENDOCRINE DISORDER [None]
  - OVERDOSE [None]
